FAERS Safety Report 16118593 (Version 3)
Quarter: 2023Q1

REPORT INFORMATION
  Report Type: Spontaneous
  Country: ES (occurrence: ES)
  Receive Date: 20190326
  Receipt Date: 20230327
  Transmission Date: 20230418
  Serious: Yes (Death, Other)
  Sender: FDA-Public Use
  Company Number: PHHY2019ES067004

PATIENT
  Age: 15 Year
  Sex: Female

DRUGS (23)
  1. METHOTREXATE SODIUM [Suspect]
     Active Substance: METHOTREXATE SODIUM
     Indication: Osteosarcoma
     Dosage: CYCLIC, CUMULATIVE DOSE 246G/M2
     Route: 065
  2. METHOTREXATE SODIUM [Suspect]
     Active Substance: METHOTREXATE SODIUM
     Indication: Graft versus host disease
     Dosage: 15 MG/M2, UNK (HIGH DOSES)
     Route: 065
     Dates: start: 199312, end: 199410
  3. METHOTREXATE SODIUM [Suspect]
     Active Substance: METHOTREXATE SODIUM
     Dosage: 10 MG/M2, Q4W (6 COURSES)
     Route: 065
  4. METHOTREXATE SODIUM [Suspect]
     Active Substance: METHOTREXATE SODIUM
     Dosage: 12 G/M2, CYCLIC (3 COURESES)
     Route: 065
     Dates: start: 198902
  5. ETOPOSIDE [Suspect]
     Active Substance: ETOPOSIDE
     Indication: Osteosarcoma
     Dosage: UNK, CYCLIC (CUMULATIVE DOSE 4000 MG/M2)
     Route: 065
  6. ETOPOSIDE [Suspect]
     Active Substance: ETOPOSIDE
     Dosage: 100 MG/M2, CYCLIC
     Route: 065
  7. ETOPOSIDE [Suspect]
     Active Substance: ETOPOSIDE
     Dosage: 400 MG/M2, CYCLIC ((10 ADDITIONAL COURSES))
     Route: 065
     Dates: start: 199312, end: 199410
  8. DOXORUBICIN HYDROCHLORIDE [Suspect]
     Active Substance: DOXORUBICIN HYDROCHLORIDE
     Indication: Osteosarcoma
     Dosage: CYCLIC, CUMULATIVE DOSE 570 MG/M2
     Route: 065
  9. DOXORUBICIN HYDROCHLORIDE [Suspect]
     Active Substance: DOXORUBICIN HYDROCHLORIDE
     Dosage: 90 MG/M2, CYCLIC (3 COURSES)
     Route: 065
     Dates: start: 198902
  10. DOXORUBICIN HYDROCHLORIDE [Suspect]
     Active Substance: DOXORUBICIN HYDROCHLORIDE
     Dosage: 50 MG/M2, CYCLIC (7 COURSES)
     Route: 065
  11. IFOSFAMIDE [Suspect]
     Active Substance: IFOSFAMIDE
     Indication: Osteosarcoma
     Dosage: UNK, CYCLIC (CUMULATIVE DOSE 4.5G/M2)
     Route: 065
  12. IFOSFAMIDE [Suspect]
     Active Substance: IFOSFAMIDE
     Dosage: 4.5 G/M2, CYCLIC
     Route: 065
  13. CISPLATIN [Suspect]
     Active Substance: CISPLATIN
     Indication: Osteosarcoma
     Dosage: 280 MG/M2, CYCLIC (CUMULATIVE DOSE)
     Route: 065
  14. CISPLATIN [Suspect]
     Active Substance: CISPLATIN
     Dosage: 40 MG/M2, CYCLIC
     Route: 065
  15. CARBOPLATIN [Suspect]
     Active Substance: CARBOPLATIN
     Indication: Osteosarcoma
     Dosage: 150 MG/M2, CYCLIC (3 CYCLES) (X3 DAYS ADMINISTERED AT 3-WEEK INTERVALS )
     Route: 013
     Dates: start: 198902
  16. CARBOPLATIN [Suspect]
     Active Substance: CARBOPLATIN
     Dosage: 600 MG/M2, CYCLIC (10 ADDITIONAL COURSES)
     Route: 065
     Dates: start: 199312, end: 199410
  17. CARBOPLATIN [Suspect]
     Active Substance: CARBOPLATIN
     Dosage: 100 MG/M2, CYCLIC (7 COURSES)
     Route: 065
  18. CYTARABINE [Suspect]
     Active Substance: CYTARABINE
     Indication: Product used for unknown indication
     Dosage: 100 MG/M2, CYCLIC
     Route: 065
  19. CYTARABINE [Suspect]
     Active Substance: CYTARABINE
     Dosage: 1 G/M2, CYCLIC (X 6 DAYS)
     Route: 065
  20. CYTARABINE [Suspect]
     Active Substance: CYTARABINE
     Dosage: UNK (LOW DOSE)
     Route: 065
  21. BLEOMYCIN [Suspect]
     Active Substance: BLEOMYCIN SULFATE
     Indication: Osteosarcoma
     Dosage: 30 MG/M2, CYCLIC
     Route: 065
  22. VINCRISTINE SULFATE [Suspect]
     Active Substance: VINCRISTINE SULFATE
     Indication: Osteosarcoma
     Dosage: 1.75 MG/M2, CYCLIC (3 COURSES)
     Route: 065
     Dates: start: 198902
  23. DACTINOMYCIN [Suspect]
     Active Substance: DACTINOMYCIN
     Indication: Osteosarcoma
     Dosage: 1.8 MG/M2, CYCLIC
     Route: 065

REACTIONS (3)
  - Leukaemia [Fatal]
  - Acute myeloid leukaemia [Fatal]
  - Second primary malignancy [Fatal]
